FAERS Safety Report 7707380-X (Version None)
Quarter: 2011Q3

REPORT INFORMATION
  Report Type: 
  Country: None (occurrence: None)
  Receive Date: 20110824
  Receipt Date: 20110816
  Transmission Date: 20111222
  Serious: Yes (Hospitalization)
  Sender: FDA-Public Use
  Company Number: BE-BAYER-2011-073687

PATIENT

DRUGS (4)
  1. SORAFENIB (RAF KINASE INHIBITOR) [Suspect]
     Indication: PRODUCT USED FOR UNKNOWN INDICATION
  2. CRESTOR [Concomitant]
     Dosage: UNK
  3. BISOPROLOL FUMARATE [Concomitant]
     Dosage: UNK
  4. AMLODIPINE BESYLATE [Concomitant]
     Dosage: UNK

REACTIONS (2)
  - PULMONARY EMBOLISM [None]
  - CHEST PAIN [None]
